FAERS Safety Report 10815149 (Version 1)
Quarter: 2015Q1

REPORT INFORMATION
  Report Type: Spontaneous
  Country: GB (occurrence: GB)
  Receive Date: 20150218
  Receipt Date: 20150218
  Transmission Date: 20150721
  Serious: Yes (Other)
  Sender: FDA-Public Use
  Company Number: GB-PFIZER INC-2015054831

PATIENT
  Age: 52 Year
  Sex: Female
  Weight: 105 kg

DRUGS (1)
  1. CHAMPIX [Suspect]
     Active Substance: VARENICLINE TARTRATE
     Dosage: 1 MG, 2X/DAY
     Route: 048
     Dates: start: 20140329, end: 20140707

REACTIONS (6)
  - Dysphagia [Unknown]
  - Oropharyngeal pain [Unknown]
  - Lichenoid keratosis [Recovered/Resolved]
  - Pain [Unknown]
  - Emotional distress [Unknown]
  - Throat irritation [Unknown]

NARRATIVE: CASE EVENT DATE: 20140624
